FAERS Safety Report 6309171-3 (Version None)
Quarter: 2009Q3

REPORT INFORMATION
  Report Type: 
  Country: None (occurrence: None)
  Receive Date: 20090814
  Receipt Date: 20090524
  Transmission Date: 20100115
  Serious: No
  Sender: FDA-Public Use
  Company Number: A0787514A

PATIENT
  Sex: Female

DRUGS (1)
  1. COREG CR [Suspect]
     Indication: DRUG USE FOR UNKNOWN INDICATION
     Dosage: 20MG UNKNOWN
     Route: 048
     Dates: start: 20090101

REACTIONS (2)
  - PRURITUS [None]
  - RASH GENERALISED [None]
